FAERS Safety Report 7573987 (Version 4)
Quarter: 2014Q1

REPORT INFORMATION
  Report Type: Spontaneous
  Country: US (occurrence: US)
  Receive Date: 20100907
  Receipt Date: 20140130
  Transmission Date: 20141002
  Serious: Yes (Other)
  Sender: FDA-Public Use
  Company Number: US-BAYER-201032541NA

PATIENT
  Age: 18 Year
  Sex: Female
  Weight: 85.71 kg

DRUGS (1)
  1. YAZ [Suspect]
     Route: 048
     Dates: start: 20071107, end: 20080207

REACTIONS (8)
  - Gallbladder disorder [Unknown]
  - Cholecystitis chronic [None]
  - Abdominal pain [None]
  - Abdominal pain lower [None]
  - Lymphadenitis [None]
  - Abdominal pain [None]
  - Pain [None]
  - Abasia [None]
